FAERS Safety Report 24071720 (Version 2)
Quarter: 2024Q3

REPORT INFORMATION
  Report Type: Report from Study
  Country: EG (occurrence: EG)
  Receive Date: 20240710
  Receipt Date: 20240710
  Transmission Date: 20241017
  Serious: No
  Sender: ROCHE
  Company Number: EG-ROCHE-3527154

PATIENT
  Age: 10 Month
  Sex: Female
  Weight: 6.0 kg

DRUGS (1)
  1. RISDIPLAM [Suspect]
     Active Substance: RISDIPLAM
     Indication: Muscle atrophy
     Route: 048
     Dates: start: 20231222

REACTIONS (2)
  - Product use issue [Unknown]
  - No adverse event [Unknown]
